FAERS Safety Report 14033330 (Version 3)
Quarter: 2017Q4

REPORT INFORMATION
  Report Type: Spontaneous
  Country: FR (occurrence: FR)
  Receive Date: 20171003
  Receipt Date: 20171104
  Transmission Date: 20180321
  Serious: Yes (Life-Threatening, Other)
  Sender: FDA-Public Use
  Company Number: FR-ACCORD-059473

PATIENT
  Age: 77 Year
  Sex: Female

DRUGS (2)
  1. AZATHIOPRINE. [Suspect]
     Active Substance: AZATHIOPRINE
     Indication: IMMUNOSUPPRESSANT DRUG THERAPY
     Dates: start: 20050421, end: 20120421
  2. METHOTREXATE. [Suspect]
     Active Substance: METHOTREXATE
     Indication: IMMUNOSUPPRESSANT DRUG THERAPY
     Dates: start: 20121016, end: 20130116

REACTIONS (4)
  - Oesophageal squamous cell carcinoma [Recovered/Resolved]
  - Dysphagia [Recovered/Resolved]
  - Helicobacter infection [Recovered/Resolved]
  - Gastrointestinal lymphoma [Recovered/Resolved]
